FAERS Safety Report 4294132-9 (Version None)
Quarter: 2004Q1

REPORT INFORMATION
  Report Type: 
  Country: None (occurrence: None)
  Receive Date: 20040212
  Receipt Date: 20040212
  Transmission Date: 20041129
  Serious: Yes (Life-Threatening, Hospitalization)
  Sender: FDA-Public Use
  Company Number: None

PATIENT
  Age: 69 Year
  Sex: Female
  Weight: 64 kg

DRUGS (1)
  1. POLYMYXIN B SULFATE [Suspect]
     Indication: VITREOUS HAEMORRHAGE
     Dosage: 500, 000 UNITS IV OTO
     Route: 042
     Dates: start: 20040206

REACTIONS (3)
  - DELAYED RECOVERY FROM ANAESTHESIA [None]
  - IATROGENIC INJURY [None]
  - MEDICATION ERROR [None]
